FAERS Safety Report 25539154 (Version 1)
Quarter: 2025Q3

REPORT INFORMATION
  Report Type: Spontaneous
  Country: EU (occurrence: EU)
  Receive Date: 20250710
  Receipt Date: 20250710
  Transmission Date: 20251020
  Serious: Yes (Death, Other)
  Sender: HIKMA
  Company Number: None

PATIENT
  Age: 44 Year
  Sex: Male

DRUGS (5)
  1. ACYCLOVIR [Concomitant]
     Active Substance: ACYCLOVIR
     Indication: Product used for unknown indication
     Dosage: 460 MILLIGRAM, QD
     Route: 042
     Dates: start: 20250226, end: 20250317
  2. FLUCONAZOLE [Concomitant]
     Active Substance: FLUCONAZOLE
     Indication: Product used for unknown indication
     Dosage: 100 MILLIGRAM, QD
     Route: 042
     Dates: start: 20250228, end: 20250309
  3. RASBURICASE [Concomitant]
     Active Substance: RASBURICASE
     Indication: Peripheral T-cell lymphoma unspecified stage IV
     Dosage: 6 MILLIGRAM, QD
     Route: 042
     Dates: start: 20250228, end: 20250302
  4. CYCLOPHOSPHAMIDE [Interacting]
     Active Substance: CYCLOPHOSPHAMIDE
     Indication: Peripheral T-cell lymphoma unspecified stage IV
     Route: 042
     Dates: start: 20250228, end: 20250228
  5. ETOPOSIDE [Interacting]
     Active Substance: ETOPOSIDE
     Indication: Peripheral T-cell lymphoma unspecified stage IV
     Dosage: 156 MILLIGRAM, QD
     Route: 042
     Dates: start: 20250228, end: 20250302

REACTIONS (1)
  - Tumour lysis syndrome [Fatal]

NARRATIVE: CASE EVENT DATE: 20250302
